FAERS Safety Report 9255126 (Version 1)
Quarter: 2013Q2

REPORT INFORMATION
  Report Type: Spontaneous
  Country: DK (occurrence: AU)
  Receive Date: 20130425
  Receipt Date: 20130425
  Transmission Date: 20140414
  Serious: Yes (Hospitalization)
  Sender: FDA-Public Use
  Company Number: AU-FRI-1000044696

PATIENT
  Age: 17 Year
  Sex: Female

DRUGS (3)
  1. ESCITALOPRAM [Suspect]
     Indication: DEPRESSION
     Dosage: 20 MG
     Dates: start: 20110815, end: 20130127
  2. ETHINYLOESTRADIOL-LEVONORGESTROL [Concomitant]
  3. IBUPROFEN [Concomitant]

REACTIONS (1)
  - Contusion [Not Recovered/Not Resolved]
